FAERS Safety Report 4364827-7 (Version None)
Quarter: 2004Q2

REPORT INFORMATION
  Report Type: 
  Country: None (occurrence: None)
  Receive Date: 20040526
  Receipt Date: 20040317
  Transmission Date: 20050107
  Serious: No
  Sender: FDA-Public Use
  Company Number: US-GLAXOSMITHKLINE-A0503734A

PATIENT
  Age: 47 Year
  Sex: Female

DRUGS (6)
  1. LOTRONEX [Suspect]
     Route: 048
  2. CARDURA [Concomitant]
  3. K-DUR 10 [Concomitant]
  4. PREVACID [Concomitant]
  5. SYNTHROID [Concomitant]
  6. TEGRETOL [Concomitant]

REACTIONS (1)
  - DRUG INEFFECTIVE [None]
